FAERS Safety Report 24795935 (Version 2)
Quarter: 2025Q1

REPORT INFORMATION
  Report Type: Spontaneous
  Country: SI (occurrence: SI)
  Receive Date: 20250101
  Receipt Date: 20250114
  Transmission Date: 20250409
  Serious: Yes (Life-Threatening, Hospitalization, Other)
  Sender: CSL BEHRING
  Company Number: SI-BEH-2024190636

PATIENT
  Age: 27 Year
  Sex: Female

DRUGS (2)
  1. PRIVIGEN [Suspect]
     Active Substance: HUMAN IMMUNOGLOBULIN G
     Indication: Thrombocytopenia
     Route: 065
     Dates: start: 20241205, end: 20241205
  2. OCTAGAM IMMUNE GLOBULIN (HUMAN) [Suspect]
     Active Substance: HUMAN IMMUNOGLOBULIN G
     Indication: Thrombocytopenia
     Route: 042
     Dates: start: 20241206, end: 20241206

REACTIONS (6)
  - Gingival bleeding [Unknown]
  - Thrombocytopenia [Unknown]
  - Respiratory distress [Unknown]
  - Pallor [Unknown]
  - Transfusion-related acute lung injury [Unknown]
  - Transfusion reaction [Unknown]

NARRATIVE: CASE EVENT DATE: 20241207
